FAERS Safety Report 18184583 (Version 1)
Quarter: 2020Q3

REPORT INFORMATION
  Report Type: Spontaneous
  Country: CA (occurrence: CA)
  Receive Date: 20200824
  Receipt Date: 20200824
  Transmission Date: 20201103
  Serious: Yes (Hospitalization)
  Sender: FDA-Public Use
  Company Number: CA-TEVA-2020-CA-1817256

PATIENT
  Age: 51 Year
  Sex: Female

DRUGS (1)
  1. INDOMETACIN [Suspect]
     Active Substance: INDOMETHACIN
     Route: 065

REACTIONS (3)
  - Partial seizures [Recovered/Resolved]
  - Meningitis aseptic [Recovered/Resolved]
  - Drug hypersensitivity [Recovered/Resolved]
